FAERS Safety Report 11674259 (Version 2)
Quarter: 2015Q4

REPORT INFORMATION
  Report Type: Spontaneous
  Country: AE (occurrence: AE)
  Receive Date: 20151028
  Receipt Date: 20151110
  Transmission Date: 20160304
  Serious: Yes (Other)
  Sender: FDA-Public Use
  Company Number: AE-NOVOPROD-467307

PATIENT
  Age: 53 Year
  Sex: Female
  Weight: 90 kg

DRUGS (7)
  1. ASPIRIN                            /00002701/ [Concomitant]
     Active Substance: ASPIRIN
     Dosage: 75 MG, QD
     Route: 065
     Dates: start: 20090607
  2. THYROXINE [Concomitant]
     Active Substance: LEVOTHYROXINE
     Dosage: 100 ?G, QD
     Route: 065
     Dates: start: 20090607
  3. ROSUVASTATIN [Concomitant]
     Active Substance: ROSUVASTATIN
     Dosage: 20 MG, QD
     Route: 065
     Dates: start: 20090820
  4. METFORMIN [Concomitant]
     Active Substance: METFORMIN HYDROCHLORIDE
     Dosage: 850 MG, QD
     Route: 065
     Dates: start: 2005
  5. BISOPROLOL [Concomitant]
     Active Substance: BISOPROLOL
     Dosage: 5 MG, QD
     Route: 065
     Dates: start: 20101013
  6. TRESIBA [Suspect]
     Active Substance: INSULIN DEGLUDEC
     Indication: TYPE 2 DIABETES MELLITUS
     Dosage: 20 U, QD
     Route: 058
     Dates: start: 20150913, end: 20150914
  7. GLUCOVANCE [Concomitant]
     Active Substance: GLYBURIDE\METFORMIN HYDROCHLORIDE
     Dosage: 4 TAB, QD (2 TABLETS AFTER BREAKFAST AND 2 TABLETS AFTER DINNER)
     Route: 065
     Dates: start: 20120828

REACTIONS (2)
  - Palpitations [Recovered/Resolved]
  - Chest discomfort [Recovered/Resolved]

NARRATIVE: CASE EVENT DATE: 20150913
